FAERS Safety Report 8562911 (Version 2)
Quarter: 2012Q4

REPORT INFORMATION
  Report Type: 
  Country: US (occurrence: US)
  Receive Date: 20120515
  Receipt Date: 20120914
  Transmission Date: 20130627
  Serious: No
  Sender: FDA-Public Use
  Company Number: US-PFIZER INC-2012116933

PATIENT
  Age: 60 Year
  Sex: Female
  Weight: 72.11 kg

DRUGS (12)
  1. CHANTIX [Suspect]
     Indication: SMOKING CESSATION THERAPY
     Dosage: 0.5 mg, daily
     Route: 048
  2. CHANTIX [Suspect]
     Dosage: UNK
     Route: 048
     Dates: end: 201205
  3. CHANTIX [Suspect]
     Dosage: UNK
     Route: 048
     Dates: start: 201205, end: 201208
  4. SIMVASTATIN [Concomitant]
     Indication: BLOOD CHOLESTEROL ABNORMAL
     Dosage: 40 mg, UNK
  5. RANITIDINE [Concomitant]
     Indication: GASTROOESOPHAGEAL REFLUX DISEASE
     Dosage: 150 mg, 2x/day
  6. RANITIDINE [Concomitant]
     Dosage: UNK
  7. MAXZIDE [Concomitant]
     Indication: HYPERTENSION
     Dosage: UNK
  8. ATENOLOL [Concomitant]
     Indication: HYPERTENSION
     Dosage: 100 mg,daily
  9. ATENOLOL [Concomitant]
     Dosage: UNK
  10. TYLENOL [Concomitant]
     Indication: PAIN
     Dosage: 300 mg, UNK
  11. TYLENOL W/CODEINE NO. 3 [Concomitant]
     Indication: ARTHRITIS
     Dosage: UNK
  12. SPIRIVA [Concomitant]
     Dosage: UNK

REACTIONS (9)
  - Gait disturbance [Unknown]
  - Insomnia [Recovered/Resolved]
  - Abnormal dreams [Unknown]
  - Memory impairment [Unknown]
  - Blood triglycerides increased [Unknown]
  - Glucose tolerance impaired [Unknown]
  - Abdominal discomfort [Recovered/Resolved]
  - Nausea [Recovered/Resolved]
  - Thinking abnormal [Recovered/Resolved]
